FAERS Safety Report 11446680 (Version 1)
Quarter: 2015Q3

REPORT INFORMATION
  Report Type: Spontaneous
  Country: US (occurrence: US)
  Receive Date: 20150831
  Receipt Date: 20150831
  Transmission Date: 20151125
  Serious: No
  Sender: FDA-Public Use
  Company Number: US-ELI_LILLY_AND_COMPANY-US200810002437

PATIENT
  Age: 34 Year
  Sex: Male

DRUGS (2)
  1. ALCOHOL. [Concomitant]
     Active Substance: ALCOHOL
  2. CYMBALTA [Suspect]
     Active Substance: DULOXETINE HYDROCHLORIDE

REACTIONS (13)
  - Economic problem [Unknown]
  - Paraesthesia [Unknown]
  - Compulsive sexual behaviour [Unknown]
  - Somnolence [Unknown]
  - Paranoia [Unknown]
  - Psychiatric symptom [Unknown]
  - Abnormal behaviour [Unknown]
  - Feeling abnormal [Unknown]
  - Depression [Unknown]
  - Anxiety [Unknown]
  - Suicidal ideation [Unknown]
  - Dissociative disorder [Unknown]
  - Fear [Unknown]
